FAERS Safety Report 9109634 (Version 1)
Quarter: 2013Q1

REPORT INFORMATION
  Report Type: Spontaneous
  Country: FR (occurrence: FR)
  Receive Date: 20130222
  Receipt Date: 20130222
  Transmission Date: 20140127
  Serious: Yes (Death, Life-Threatening, Other)
  Sender: FDA-Public Use
  Company Number: FR-PFIZER INC-2013063282

PATIENT
  Age: 36 Year
  Sex: Male

DRUGS (2)
  1. XANAX [Suspect]
     Indication: SCHIZOPHRENIA
     Dosage: UNK
     Route: 048
  2. ZYPREXA [Suspect]
     Indication: SCHIZOPHRENIA
     Dosage: 10 MG, 1X/DAY
     Route: 048
     Dates: start: 1998

REACTIONS (10)
  - Cardiac arrest [Fatal]
  - Status epilepticus [Fatal]
  - Loss of consciousness [Unknown]
  - Electrocardiogram repolarisation abnormality [Unknown]
  - Suicidal ideation [Unknown]
  - Anxiety [Unknown]
  - Fatigue [Unknown]
  - Pallor [Unknown]
  - Malaise [Unknown]
  - Off label use [Unknown]
